FAERS Safety Report 5952824-7 (Version None)
Quarter: 2008Q4

REPORT INFORMATION
  Report Type: 
  Country: None (occurrence: None)
  Receive Date: 20081114
  Receipt Date: 20081104
  Transmission Date: 20090506
  Serious: Yes (Hospitalization, Other)
  Sender: FDA-Public Use
  Company Number: FR-JNJFOC-20080504287

PATIENT
  Sex: Male

DRUGS (9)
  1. RISPERDAL [Suspect]
     Indication: PSYCHOMOTOR HYPERACTIVITY
     Route: 048
  2. RITALIN [Concomitant]
     Indication: PSYCHOMOTOR HYPERACTIVITY
     Route: 065
  3. EQUANIL [Concomitant]
     Indication: PSYCHOMOTOR HYPERACTIVITY
     Route: 065
  4. LAROXYL [Concomitant]
     Indication: PSYCHOMOTOR HYPERACTIVITY
     Route: 065
  5. SULFARLEM [Concomitant]
     Route: 065
  6. ZOLPIDEM [Concomitant]
     Indication: INSOMNIA
     Route: 048
  7. LEPTICUR [Concomitant]
     Indication: INSOMNIA
     Route: 065
  8. ATARAX [Concomitant]
     Indication: ANXIETY
     Route: 065
  9. NOCTRAN [Concomitant]
     Indication: INSOMNIA
     Route: 065

REACTIONS (2)
  - INFLAMMATION [None]
  - VENOUS THROMBOSIS [None]
